FAERS Safety Report 7877842-3 (Version None)
Quarter: 2011Q4

REPORT INFORMATION
  Report Type: 
  Country: None (occurrence: None)
  Receive Date: 20111031
  Receipt Date: 20111031
  Transmission Date: 20120403
  Serious: Yes (Other)
  Sender: FDA-Public Use
  Company Number: None

PATIENT
  Age: 83 Year
  Sex: Male
  Weight: 83.914 kg

DRUGS (2)
  1. VESICARE [Suspect]
     Indication: URINE FLOW DECREASED
     Dosage: 5MG
     Route: 048
     Dates: start: 20111118, end: 20111120
  2. VESICARE [Suspect]
     Indication: POLLAKIURIA
     Dosage: 5MG
     Route: 048
     Dates: start: 20111118, end: 20111120

REACTIONS (4)
  - SCROTAL PAIN [None]
  - PENILE SWELLING [None]
  - SCROTAL SWELLING [None]
  - OEDEMA PERIPHERAL [None]
